FAERS Safety Report 5624721-8 (Version None)
Quarter: 2008Q1

REPORT INFORMATION
  Report Type: 
  Country: None (occurrence: None)
  Receive Date: 20080213
  Receipt Date: 20080201
  Transmission Date: 20080703
  Serious: Yes (Other)
  Sender: FDA-Public Use
  Company Number: D0056003A

PATIENT
  Age: 67 Year
  Sex: Female

DRUGS (12)
  1. AUGMENTIN '125' [Suspect]
     Indication: INFECTION PROPHYLAXIS
     Dosage: 2.2G TWICE PER DAY
     Route: 042
     Dates: start: 20040810
  2. CEFAZOLIN [Suspect]
     Indication: PSOAS ABSCESS
     Dosage: 2G UNKNOWN
     Route: 042
  3. NOVALGIN [Suspect]
     Indication: PAIN
     Route: 048
     Dates: start: 20040803
  4. FRAGMIN [Suspect]
     Indication: PROPHYLAXIS
     Route: 058
     Dates: start: 20040706
  5. DECORTIN [Suspect]
     Indication: SYSTEMIC LUPUS ERYTHEMATOSUS
     Dosage: 5MG IN THE MORNING
     Route: 048
     Dates: start: 20040707
  6. LASIX [Suspect]
     Dosage: 20MG TWICE PER DAY
     Route: 048
     Dates: start: 20040727, end: 20040803
  7. PANTOZOL [Suspect]
     Indication: PROPHYLAXIS
     Dosage: 40MG TWICE PER DAY
     Route: 048
     Dates: start: 20040728
  8. AMITRIPTYLINE HCL [Suspect]
     Indication: DEPRESSION
     Dosage: 25MG AT NIGHT
     Route: 048
     Dates: start: 20040801
  9. NAVOBAN [Suspect]
     Indication: NAUSEA
     Dosage: 2MG THREE TIMES PER DAY
     Route: 042
     Dates: start: 20040803, end: 20040818
  10. LACTULOSE [Suspect]
     Dosage: 20ML THREE TIMES PER DAY
     Route: 048
     Dates: start: 20040803
  11. LASIX [Suspect]
     Dosage: 20MG UNKNOWN
     Route: 042
     Dates: start: 20040804
  12. MULTIPLE MEDICATION [Concomitant]
     Indication: PAIN
     Route: 065

REACTIONS (5)
  - BLISTER [None]
  - NIKOLSKY'S SIGN [None]
  - PYREXIA [None]
  - SKIN LESION [None]
  - STEVENS-JOHNSON SYNDROME [None]
